FAERS Safety Report 6432134-4 (Version None)
Quarter: 2009Q4

REPORT INFORMATION
  Report Type: 
  Country: None (occurrence: None)
  Receive Date: 20091109
  Receipt Date: 20091026
  Transmission Date: 20100525
  Serious: Yes (Life-Threatening, Hospitalization)
  Sender: FDA-Public Use
  Company Number: US-BRISTOL-MYERS SQUIBB COMPANY-14832190

PATIENT
  Age: 16 Year
  Sex: Male

DRUGS (2)
  1. TRIMETHOPRIM + SULFAMETHOXAZOLE [Suspect]
     Indication: CELLULITIS
  2. AMOXICILLIN [Suspect]

REACTIONS (3)
  - PNEUMONIA [None]
  - SEPSIS [None]
  - TOXIC EPIDERMAL NECROLYSIS [None]
